FAERS Safety Report 7943289-4 (Version None)
Quarter: 2011Q4

REPORT INFORMATION
  Report Type: 
  Country: None (occurrence: None)
  Receive Date: 20111128
  Receipt Date: 20111122
  Transmission Date: 20120403
  Serious: Yes (Other)
  Sender: FDA-Public Use
  Company Number: GB-B.I. PHARMACEUTICALS,INC./RIDGEFIELD-2011-UK-01270UK

PATIENT
  Sex: Male

DRUGS (3)
  1. FLUCLOX [Concomitant]
  2. PRADAXA [Suspect]
     Indication: THROMBOSIS PROPHYLAXIS
  3. TRAMADOL HCL [Concomitant]

REACTIONS (1)
  - PULMONARY EMBOLISM [None]
